FAERS Safety Report 6577509-8 (Version None)
Quarter: 2010Q1

REPORT INFORMATION
  Report Type: 
  Country: None (occurrence: None)
  Receive Date: 20100211
  Receipt Date: 20100203
  Transmission Date: 20100710
  Serious: Yes (Hospitalization)
  Sender: FDA-Public Use
  Company Number: US-ASTRAZENECA-2010SE05153

PATIENT
  Age: 25653 Day
  Sex: Male
  Weight: 67.1 kg

DRUGS (8)
  1. SEROQUEL [Suspect]
     Indication: BIPOLAR I DISORDER
     Route: 048
     Dates: start: 20091215, end: 20100105
  2. COZAAR [Concomitant]
  3. LEBATOL [Concomitant]
  4. DYNCIRC [Concomitant]
  5. SYNTHROID [Concomitant]
  6. LIPITOR [Concomitant]
  7. LUMIGAN [Concomitant]
  8. CARBANZAMINE [Concomitant]

REACTIONS (4)
  - ANXIETY [None]
  - INSOMNIA [None]
  - MUSCLE TWITCHING [None]
  - PHYSICAL ASSAULT [None]
